FAERS Safety Report 6581458-9 (Version None)
Quarter: 2010Q1

REPORT INFORMATION
  Report Type: 
  Country: None (occurrence: None)
  Receive Date: 20100215
  Receipt Date: 20100201
  Transmission Date: 20100710
  Serious: Yes (Hospitalization)
  Sender: FDA-Public Use
  Company Number: A0844085A

PATIENT
  Sex: Female

DRUGS (2)
  1. LAMICTAL [Suspect]
     Route: 065
  2. UNSPECIFIED MEDICATION [Concomitant]

REACTIONS (3)
  - OVERDOSE [None]
  - RASH GENERALISED [None]
  - STEVENS-JOHNSON SYNDROME [None]
